FAERS Safety Report 4486731-6 (Version None)
Quarter: 2004Q4

REPORT INFORMATION
  Report Type: 
  Country: None (occurrence: None)
  Receive Date: 20041021
  Receipt Date: 20040927
  Transmission Date: 20050328
  Serious: Yes (Hospitalization)
  Sender: FDA-Public Use
  Company Number: S04-GER-02574-01

PATIENT
  Age: 38 Year
  Sex: Male

DRUGS (4)
  1. CIPRALEX (ESCITALOPRAM) [Suspect]
     Indication: DEPRESSION
     Dosage: 10 MG QD PO
     Route: 048
     Dates: start: 20031124
  2. EPIVIR [Suspect]
     Indication: HIV INFECTION
     Dosage: 300 MG QD PO
     Route: 048
  3. KALETRA [Suspect]
     Indication: HIV INFECTION
     Dosage: 6 QD PO
     Route: 048
  4. VIDEX [Suspect]
     Indication: HIV INFECTION
     Dosage: 400 MG QD PO
     Route: 048

REACTIONS (7)
  - ATRIAL FIBRILLATION [None]
  - DRUG WITHDRAWAL SYNDROME [None]
  - HYPERTENSION [None]
  - INTRACARDIAC THROMBUS [None]
  - MOOD ALTERED [None]
  - SINUS TACHYCARDIA [None]
  - SUICIDAL IDEATION [None]
